FAERS Safety Report 16380789 (Version 6)
Quarter: 2020Q2

REPORT INFORMATION
  Report Type: Report from Study
  Country: IT (occurrence: IT)
  Receive Date: 20190601
  Receipt Date: 20200416
  Transmission Date: 20200713
  Serious: Yes (Other)
  Sender: FDA-Public Use
  Company Number: IT-TAKEDA-2019TUS032908

PATIENT
  Sex: Male

DRUGS (4)
  1. SULFASALAZINE. [Concomitant]
     Active Substance: SULFASALAZINE
     Indication: COLITIS ULCERATIVE
     Dosage: 100 MILLIGRAM, QD
     Route: 048
     Dates: start: 2017
  2. INFLIXIMAB [Concomitant]
     Active Substance: INFLIXIMAB
     Dosage: UNK, Q8WEEKS
     Route: 042
     Dates: start: 20190405
  3. MESALAMINE. [Concomitant]
     Active Substance: MESALAMINE
     Dosage: 800 MILLIGRAM, QD
  4. VEDOLIZUMAB [Suspect]
     Active Substance: VEDOLIZUMAB
     Indication: COLITIS ULCERATIVE
     Dosage: 300 MILLIGRAM
     Route: 042
     Dates: start: 20190311, end: 20190311

REACTIONS (1)
  - Squamous cell carcinoma of skin [Not Recovered/Not Resolved]

NARRATIVE: CASE EVENT DATE: 20190501
